FAERS Safety Report 9060017 (Version 1)
Quarter: 2013Q1

REPORT INFORMATION
  Report Type: Spontaneous
  Country: US (occurrence: None)
  Receive Date: 20130207
  Receipt Date: 20130207
  Transmission Date: 20140127
  Serious: No
  Sender: FDA-Public Use
  Company Number: None

PATIENT
  Age: 78 Year
  Sex: Male
  Weight: 106.14 kg

DRUGS (8)
  1. NIACOR [Suspect]
  2. ATENOLOL [Concomitant]
  3. LISINOPRIL [Concomitant]
  4. AMLODIPINE [Concomitant]
  5. HYDROCHLOROTHIAZIDE [Concomitant]
  6. CLOPIDOGREL [Concomitant]
  7. PRASTATIN SODIUM [Concomitant]
  8. LEVOTHYROXIN [Concomitant]

REACTIONS (9)
  - Pain [None]
  - Erythema [None]
  - Pruritus [None]
  - Insomnia [None]
  - Pain [None]
  - Emotional distress [None]
  - Anxiety [None]
  - Skin burning sensation [None]
  - Frustration [None]
